FAERS Safety Report 15004396 (Version 3)
Quarter: 2018Q4

REPORT INFORMATION
  Report Type: Spontaneous
  Country: US (occurrence: US)
  Receive Date: 20180613
  Receipt Date: 20181030
  Transmission Date: 20190204
  Serious: No
  Sender: FDA-Public Use
  Company Number: US-PFIZER INC-2018239733

PATIENT
  Age: 75 Year
  Sex: Female

DRUGS (3)
  1. GABAPENTIN. [Suspect]
     Active Substance: GABAPENTIN
     Indication: SPINAL CLAUDICATION
  2. GABAPENTIN. [Suspect]
     Active Substance: GABAPENTIN
     Indication: LUMBAR SPINAL STENOSIS
     Dosage: 100 MG, 2X/DAY (180 (ONE HUNDRED EIGHTY) CAPSULE)
     Route: 048
     Dates: start: 20180713, end: 2018
  3. GABAPENTIN. [Suspect]
     Active Substance: GABAPENTIN
     Indication: LUMBAR RADICULOPATHY

REACTIONS (1)
  - Drug ineffective for unapproved indication [Unknown]

NARRATIVE: CASE EVENT DATE: 2018
